FAERS Safety Report 9885545 (Version 3)
Quarter: 2014Q2

REPORT INFORMATION
  Report Type: Report from Study
  Country: US (occurrence: US)
  Receive Date: 20140210
  Receipt Date: 20140404
  Transmission Date: 20141212
  Serious: Yes (Hospitalization)
  Sender: FDA-Public Use
  Company Number: US-PURDUE-USA-2012-0111059

PATIENT
  Age: 54 Year
  Sex: Female
  Weight: 46.71 kg

DRUGS (13)
  1. MS CONTIN TABLETS [Suspect]
     Indication: PAIN
     Dosage: 15 MG, BID
     Route: 048
     Dates: start: 20120612, end: 20120612
  2. INVESTIGATIONAL DRUG [Suspect]
     Indication: NON-SMALL CELL LUNG CANCER
     Dosage: 45 MG, UNK
     Dates: start: 20120529, end: 20120618
  3. DOXYCYCLINE [Suspect]
     Indication: NON-SMALL CELL LUNG CANCER
     Dosage: 100 MG, BID
     Route: 048
     Dates: start: 20120529, end: 20120620
  4. ALEVE [Suspect]
     Indication: PAIN
     Dosage: 220 MG, BID
     Route: 048
     Dates: start: 20120612, end: 20120613
  5. ZOFRAN                             /00955301/ [Suspect]
     Indication: NAUSEA
     Dosage: 4 MG, Q6H
     Dates: start: 20120617, end: 20120619
  6. MOTRIN [Suspect]
     Indication: MUSCULOSKELETAL PAIN
     Dosage: 800 MG, BID
     Route: 048
     Dates: start: 201006, end: 20120612
  7. PAMIDRONATE [Concomitant]
     Indication: METASTASES TO BONE
     Dosage: UNK
     Dates: start: 20110225
  8. FOLIC ACID [Concomitant]
     Indication: CHEMOTHERAPY CYTOKINE PROPHYLAXIS
     Dosage: UNK
     Dates: start: 20111201
  9. THERAGRAN-M                        /00610701/ [Concomitant]
     Indication: ROUTINE HEALTH MAINTENANCE
     Dosage: UNK
     Dates: start: 19880101
  10. B12                                /00056201/ [Concomitant]
     Indication: ROUTINE HEALTH MAINTENANCE
     Dosage: UNK
     Dates: start: 19880101
  11. VITAMIN D                          /00107901/ [Concomitant]
     Indication: ROUTINE HEALTH MAINTENANCE
     Dosage: UNK
     Dates: start: 19880101
  12. VITAMIN E                          /00110501/ [Concomitant]
     Indication: ROUTINE HEALTH MAINTENANCE
     Dosage: UNK
     Dates: start: 19880101
  13. VITAMIN C                          /00008001/ [Concomitant]
     Indication: ROUTINE HEALTH MAINTENANCE
     Dosage: UNK
     Dates: start: 19880101

REACTIONS (1)
  - Dehydration [Recovered/Resolved]
